FAERS Safety Report 8133049-6 (Version None)
Quarter: 2012Q1

REPORT INFORMATION
  Report Type: 
  Country: None (occurrence: None)
  Receive Date: 20120213
  Receipt Date: 20120131
  Transmission Date: 20120608
  Serious: Yes (Other)
  Sender: FDA-Public Use
  Company Number: PHFR2011GB05457

PATIENT
  Sex: Female

DRUGS (5)
  1. CLOZARIL [Suspect]
     Indication: SCHIZOPHRENIA
     Route: 048
     Dates: start: 20100304
  2. CLOZARIL [Suspect]
     Dosage: 300 MG, UNK
     Route: 048
  3. AMISULPRIDE [Concomitant]
     Dosage: 100 MG, UNK
  4. CLOZARIL [Suspect]
     Dosage: 200 MG, UNK
     Route: 048
  5. PROCYCLIDINE HYDROCHLORIDE 2MG TAB [Concomitant]

REACTIONS (3)
  - PAROTID GLAND ENLARGEMENT [None]
  - PAROTITIS [None]
  - SALIVARY HYPERSECRETION [None]
